FAERS Safety Report 5122628-6 (Version None)
Quarter: 2006Q4

REPORT INFORMATION
  Report Type: 
  Country: None (occurrence: None)
  Receive Date: 20061004
  Receipt Date: 20060926
  Transmission Date: 20070319
  Serious: Yes (Other)
  Sender: FDA-Public Use
  Company Number: 2006JP003483

PATIENT
  Age: 92 Year
  Sex: Male

DRUGS (2)
  1. VESICARE [Suspect]
     Dosage: 5 MG, UID/QD, ORAL
     Route: 048
  2. NIFLAN(PRANOPROFEN) PER ORAL NOS [Suspect]
     Dosage: ORAL
     Route: 048

REACTIONS (1)
  - DEMENTIA [None]
